FAERS Safety Report 4690645-6 (Version None)
Quarter: 2005Q2

REPORT INFORMATION
  Report Type: 
  Country: None (occurrence: None)
  Receive Date: 20050615
  Receipt Date: 20050614
  Transmission Date: 20051028
  Serious: Yes (Other)
  Sender: FDA-Public Use
  Company Number: US-GLAXOSMITHKLINE-A0562615A

PATIENT
  Sex: Female

DRUGS (3)
  1. VENTOLIN [Suspect]
     Indication: ASTHMA
     Route: 055
     Dates: start: 20040601, end: 20040101
  2. VERAPAMIL [Concomitant]
  3. LIPITOR [Concomitant]

REACTIONS (3)
  - APHASIA [None]
  - HYPERHIDROSIS [None]
  - PALPITATIONS [None]
